FAERS Safety Report 13651480 (Version 2)
Quarter: 2017Q3

REPORT INFORMATION
  Report Type: Spontaneous
  Country: JP (occurrence: JP)
  Receive Date: 20170614
  Receipt Date: 20170728
  Transmission Date: 20171127
  Serious: Yes (Other)
  Sender: FDA-Public Use
  Company Number: JP-PFIZER INC-2017258603

PATIENT
  Age: 8 Decade
  Sex: Male

DRUGS (3)
  1. LIPITOR [Suspect]
     Active Substance: ATORVASTATIN CALCIUM
     Dosage: UNK
     Route: 048
  2. MICARDIS [Suspect]
     Active Substance: TELMISARTAN
     Dosage: UNK
     Route: 048
  3. ADONA /00056903/ [Concomitant]
     Active Substance: CARBAZOCHROME SODIUM SULFONATE
     Dosage: UNK

REACTIONS (3)
  - Haemorrhage subcutaneous [Recovered/Resolved]
  - Epistaxis [Recovered/Resolved]
  - Rhinorrhoea [Unknown]
